FAERS Safety Report 6528781-1 (Version None)
Quarter: 2010Q1

REPORT INFORMATION
  Report Type: 
  Country: None (occurrence: None)
  Receive Date: 20100106
  Receipt Date: 20091228
  Transmission Date: 20100710
  Serious: Yes (Hospitalization)
  Sender: FDA-Public Use
  Company Number: JP-AMGEN-US333544

PATIENT
  Sex: Male
  Weight: 62 kg

DRUGS (11)
  1. ENBREL [Suspect]
     Indication: RHEUMATOID ARTHRITIS
     Route: 058
     Dates: start: 20070921, end: 20080522
  2. ENBREL [Suspect]
     Dosage: SOLUTION FOR INJECTION: 25 MG ONCE WEEKLY
     Route: 058
  3. MEDROL [Suspect]
     Indication: RHEUMATOID ARTHRITIS
     Route: 048
     Dates: start: 20070509
  4. ISOCOTIN [Concomitant]
     Dosage: UNSPECIFIED
     Route: 048
     Dates: start: 20070917
  5. CLARITH [Concomitant]
     Dosage: UNSPECIFIED
     Route: 048
  6. MYONAL [Concomitant]
     Indication: RHEUMATOID ARTHRITIS
     Dosage: UNSPECIFIED
     Route: 048
  7. MUCOSTA [Concomitant]
     Dosage: UNSPECIFIED
     Route: 048
  8. MUCOSOLVAN [Concomitant]
     Dosage: UNSPECIFIED
     Route: 048
  9. MUCODYNE [Concomitant]
     Dosage: UNSPECIFIED
     Route: 048
  10. SALAZOSULFAPYRIDINE [Concomitant]
     Indication: RHEUMATOID ARTHRITIS
     Route: 048
     Dates: start: 20061003
  11. LOXONIN [Concomitant]
     Indication: RHEUMATOID ARTHRITIS
     Dosage: UNSPECIFIED
     Route: 048

REACTIONS (2)
  - PNEUMONIA [None]
  - PNEUMOTHORAX [None]
